FAERS Safety Report 12649802 (Version 1)
Quarter: 2016Q3

REPORT INFORMATION
  Report Type: Spontaneous
  Country: US (occurrence: US)
  Receive Date: 20160812
  Receipt Date: 20160812
  Transmission Date: 20161109
  Serious: No
  Sender: FDA-Public Use
  Company Number: GXBR2016US002318

PATIENT

DRUGS (1)
  1. ZARXIO [Suspect]
     Active Substance: FILGRASTIM-SNDZ
     Indication: SUPPORTIVE CARE
     Dosage: UNK DF, UNK
     Route: 065

REACTIONS (1)
  - Neutrophil count abnormal [Unknown]
